FAERS Safety Report 7598520-4 (Version None)
Quarter: 2011Q3

REPORT INFORMATION
  Report Type: 
  Country: None (occurrence: None)
  Receive Date: 20110708
  Receipt Date: 20110628
  Transmission Date: 20111222
  Serious: Yes (Other)
  Sender: FDA-Public Use
  Company Number: FR-ELI_LILLY_AND_COMPANY-FR201106003679

PATIENT
  Sex: Female

DRUGS (5)
  1. LASIX [Concomitant]
     Indication: HYPERTENSION
     Route: 048
  2. PERINDOPRIL ERBUMINE [Concomitant]
     Indication: HYPERTENSION
     Route: 048
  3. PROPRANOLOL [Concomitant]
     Indication: TREMOR
     Dosage: UNK
     Route: 048
     Dates: start: 20110101
  4. HUMALOG [Suspect]
     Indication: DIABETES MELLITUS
     Route: 058
  5. MODOPAR [Concomitant]
     Indication: PARKINSON'S DISEASE

REACTIONS (2)
  - LYMPHADENOPATHY MEDIASTINAL [None]
  - INTERSTITIAL LUNG DISEASE [None]
